FAERS Safety Report 8320119-2 (Version None)
Quarter: 2012Q2

REPORT INFORMATION
  Report Type: 
  Country: None (occurrence: None)
  Receive Date: 20120430
  Receipt Date: 20120416
  Transmission Date: 20120825
  Serious: Yes (Other)
  Sender: FDA-Public Use
  Company Number: US-BRISTOL-MYERS SQUIBB COMPANY-16525248

PATIENT
  Age: 68 Year
  Sex: Female

DRUGS (4)
  1. PACLITAXEL [Suspect]
     Indication: BREAST CANCER METASTATIC
  2. EPIRUBICIN [Concomitant]
  3. CYCLOPHOSPHAMIDE [Concomitant]
  4. FLUOROURACIL [Concomitant]

REACTIONS (5)
  - NAIL DISCOLOURATION [None]
  - ONYCHOLYSIS [None]
  - NAIL BED BLEEDING [None]
  - NAIL INFECTION [None]
  - PYOGENIC GRANULOMA [None]
